FAERS Safety Report 11896413 (Version 2)
Quarter: 2016Q1

REPORT INFORMATION
  Report Type: Spontaneous
  Country: IT (occurrence: IT)
  Receive Date: 20160107
  Receipt Date: 20160121
  Transmission Date: 20160526
  Serious: Yes (Other)
  Sender: FDA-Public Use
  Company Number: IT-BAYER-2014-147028

PATIENT
  Age: 40 Year
  Sex: Male

DRUGS (6)
  1. DELECIT [Concomitant]
     Active Substance: CHOLINE ALFOSCERATE
  2. TACHIPIRINA [Concomitant]
     Active Substance: ACETAMINOPHEN
     Dosage: DAILY DOSE 1000 MG
  3. RIVOTRIL [Concomitant]
     Active Substance: CLONAZEPAM
     Route: 048
  4. FESOTERODINE [Concomitant]
     Active Substance: FESOTERODINE
  5. BETAFERON [Suspect]
     Active Substance: INTERFERON BETA-1B
     Indication: MULTIPLE SCLEROSIS
     Dosage: 1 DF, UNK
  6. CIPRALEX [Concomitant]
     Active Substance: ESCITALOPRAM OXALATE
     Dosage: UNK
     Route: 048

REACTIONS (3)
  - Depression [Unknown]
  - Pyrexia [Unknown]
  - Migraine [Unknown]

NARRATIVE: CASE EVENT DATE: 20120101
